FAERS Safety Report 13940600 (Version 1)
Quarter: 2017Q3

REPORT INFORMATION
  Report Type: Spontaneous
  Country: US (occurrence: US)
  Receive Date: 20170906
  Receipt Date: 20170906
  Transmission Date: 20171127
  Serious: No
  Sender: FDA-Public Use
  Company Number: US-GLAXOSMITHKLINE-US2017133532

PATIENT
  Age: 82 Year
  Sex: Female

DRUGS (2)
  1. VOLTAREN [Suspect]
     Active Substance: DICLOFENAC SODIUM
     Indication: RHEUMATOID ARTHRITIS
     Dosage: UNK
     Dates: start: 201702
  2. VOLTAREN [Suspect]
     Active Substance: DICLOFENAC SODIUM
     Indication: UPPER LIMB FRACTURE

REACTIONS (2)
  - Product use in unapproved indication [Unknown]
  - Drug effective for unapproved indication [Unknown]
